FAERS Safety Report 6446447-3 (Version None)
Quarter: 2009Q4

REPORT INFORMATION
  Report Type: 
  Country: None (occurrence: None)
  Receive Date: 20091119
  Receipt Date: 20091110
  Transmission Date: 20100525
  Serious: Yes (Hospitalization)
  Sender: FDA-Public Use
  Company Number: PHEH2009US15418

PATIENT
  Sex: Female

DRUGS (3)
  1. EXJADE [Suspect]
     Indication: SICKLE CELL ANAEMIA
     Dosage: 1000 MG DAILY
     Route: 048
     Dates: start: 20090730
  2. EXJADE [Suspect]
     Indication: TRANSFUSION
  3. EXJADE [Suspect]
     Indication: IRON OVERLOAD

REACTIONS (1)
  - WOUND SEPSIS [None]
